FAERS Safety Report 12316368 (Version 2)
Quarter: 2016Q3

REPORT INFORMATION
  Report Type: Spontaneous
  Country: BR (occurrence: BR)
  Receive Date: 20160429
  Receipt Date: 20160707
  Transmission Date: 20161109
  Serious: Yes (Hospitalization, Other)
  Sender: FDA-Public Use
  Company Number: BR-AMGEN-BRASP2016053173

PATIENT
  Age: 32 Year
  Sex: Female
  Weight: 70 kg

DRUGS (2)
  1. ENBREL [Suspect]
     Active Substance: ETANERCEPT
     Indication: ANKYLOSING SPONDYLITIS
     Dosage: 50 MG, 1 X WEEK
     Route: 065
     Dates: start: 20160409, end: 20160510
  2. PREDNISONE. [Concomitant]
     Active Substance: PREDNISONE
     Indication: ANKYLOSING SPONDYLITIS
     Dosage: UNK
     Dates: start: 2012, end: 20160525

REACTIONS (16)
  - Pain [Recovered/Resolved]
  - Back pain [Recovered/Resolved]
  - Gastrointestinal infection [Unknown]
  - Thrombocytopenia [Unknown]
  - Ankylosing spondylitis [Not Recovered/Not Resolved]
  - Condition aggravated [Not Recovered/Not Resolved]
  - Arthralgia [Recovered/Resolved]
  - Gastritis [Unknown]
  - Oesophagitis [Unknown]
  - Leukopenia [Unknown]
  - Mobility decreased [Not Recovered/Not Resolved]
  - Feeling abnormal [Recovered/Resolved]
  - Sensory disturbance [Recovered/Resolved]
  - Burning sensation [Recovered/Resolved]
  - Mouth injury [Unknown]
  - Drug ineffective [Recovered/Resolved]

NARRATIVE: CASE EVENT DATE: 20160411
